FAERS Safety Report 5102147-3 (Version None)
Quarter: 2006Q3

REPORT INFORMATION
  Report Type: 
  Country: None (occurrence: None)
  Receive Date: 20060907
  Receipt Date: 20060825
  Transmission Date: 20061208
  Serious: Yes (Hospitalization)
  Sender: FDA-Public Use
  Company Number: 2006BI008479

PATIENT
  Age: 66 Year
  Sex: Female

DRUGS (1)
  1. AVONEX [Suspect]
     Indication: MULTIPLE SCLEROSIS
     Dosage: 30 UG; QW; IM
     Route: 030
     Dates: start: 20011211, end: 20060317

REACTIONS (8)
  - ASTHENIA [None]
  - CYSTITIS [None]
  - DIALYSIS [None]
  - DYSPHAGIA [None]
  - ORAL INTAKE REDUCED [None]
  - PNEUMONIA [None]
  - RENAL DISORDER [None]
  - UROSEPSIS [None]
